FAERS Safety Report 24100566 (Version 2)
Quarter: 2024Q3

REPORT INFORMATION
  Report Type: Spontaneous
  Country: FR (occurrence: FR)
  Receive Date: 20240717
  Receipt Date: 20240731
  Transmission Date: 20241017
  Serious: Yes (Other)
  Sender: AUROBINDO
  Company Number: FR-STADA-01262500

PATIENT
  Age: 30 Year
  Sex: Male

DRUGS (1)
  1. PREGABALIN [Suspect]
     Active Substance: PREGABALIN
     Indication: Product used for unknown indication
     Dosage: 1200 MILLIGRAM, ONCE A DAY
     Route: 065

REACTIONS (9)
  - Weaning failure [Unknown]
  - Pharmaceutical nomadism [Unknown]
  - Drug dependence [Unknown]
  - Intentional overdose [Unknown]
  - Drug abuse [Unknown]
  - Intentional product misuse [Unknown]
  - Drug use disorder [Unknown]
  - Overdose [Unknown]
  - Off label use [Unknown]
